FAERS Safety Report 7877528-5 (Version None)
Quarter: 2011Q4

REPORT INFORMATION
  Report Type: 
  Country: None (occurrence: None)
  Receive Date: 20111031
  Receipt Date: 20111024
  Transmission Date: 20120403
  Serious: Yes (Hospitalization)
  Sender: FDA-Public Use
  Company Number: NL-PFIZER INC-2011085302

PATIENT
  Age: 46 Year
  Sex: Female

DRUGS (9)
  1. INSULIN ASPART [Suspect]
     Dosage: 27 IU, UNK
  2. ACETYLSALICYLIC ACID [Concomitant]
     Dosage: UNK
     Dates: start: 20100823
  3. CELEBREX [Suspect]
     Indication: ARTHRITIS
  4. METFORMIN HCL [Suspect]
     Dosage: 500 MG, UNK
     Dates: start: 20110110, end: 20110110
  5. INSULIN GLARGINE [Suspect]
     Dosage: 20 IU, UNK
  6. LISINOPRIL [Suspect]
  7. BLINDED THERAPY [Suspect]
     Indication: TYPE 2 DIABETES MELLITUS
     Dosage: BLINDED THERAPY 5 MG SAXAGLIPTIN
     Dates: start: 20100826
  8. HYDROCHLOROTHIAZIDE [Suspect]
  9. SPIRONOLACTONE [Suspect]

REACTIONS (3)
  - RENAL FAILURE ACUTE [None]
  - DEHYDRATION [None]
  - ENTERITIS [None]
